FAERS Safety Report 6270532-2 (Version None)
Quarter: 2009Q3

REPORT INFORMATION
  Report Type: 
  Country: None (occurrence: None)
  Receive Date: 20090716
  Receipt Date: 20090706
  Transmission Date: 20100115
  Serious: Yes (Hospitalization)
  Sender: FDA-Public Use
  Company Number: US-PFIZER INC-2009196231

PATIENT
  Sex: Male
  Weight: 72.971 kg

DRUGS (11)
  1. BLINDED *NO SUBJECT DRUG [Suspect]
     Indication: TRANSITIONAL CELL CARCINOMA
     Dosage: 50 MG, 1X/DAY
     Route: 048
     Dates: start: 20090121, end: 20090331
  2. BLINDED *PLACEBO [Suspect]
     Indication: TRANSITIONAL CELL CARCINOMA
     Dosage: 50 MG, 1X/DAY
     Route: 048
     Dates: start: 20090121, end: 20090331
  3. BLINDED SUNITINIB MALATE [Suspect]
     Indication: TRANSITIONAL CELL CARCINOMA
     Dosage: 50 MG, 1X/DAY
     Route: 048
     Dates: start: 20090121, end: 20090331
  4. TYLENOL (CAPLET) [Concomitant]
     Dosage: UNK
     Route: 048
  5. ROXANOL [Concomitant]
     Dosage: 10-20MG 20 MG/ML 120 ML EVERY 2-4 HOURS
     Route: 048
  6. PROCHLORPERAZINE [Concomitant]
     Dosage: 25 MG, EVERY 12 HOURS
     Route: 054
  7. LISINOPRIL [Concomitant]
     Dosage: 5 MG, 1X/DAY
     Route: 048
     Dates: start: 20090210
  8. FLUOXETINE [Concomitant]
     Dosage: 10 MG, 1X/DAY
     Route: 048
  9. DOCUSATE SODIUM [Concomitant]
     Dosage: 100 MG, 2X/DAY
     Route: 048
  10. BISACODYL [Concomitant]
     Dosage: 10 MG, UNK
  11. ALBUTEROL SULFATE [Concomitant]
     Dosage: 2 PUFF, Q 4/6
     Route: 055

REACTIONS (2)
  - DIARRHOEA [None]
  - URINARY TRACT INFECTION [None]
